FAERS Safety Report 5607746-8 (Version None)
Quarter: 2008Q1

REPORT INFORMATION
  Report Type: 
  Country: None (occurrence: None)
  Receive Date: 20080130
  Receipt Date: 20080122
  Transmission Date: 20080703
  Serious: Yes (Hospitalization, Other)
  Sender: FDA-Public Use
  Company Number: PHHO2007JP07356

PATIENT
  Age: 66 Year
  Sex: Male
  Weight: 63 kg

DRUGS (8)
  1. AMN107 [Suspect]
     Indication: CHRONIC MYELOID LEUKAEMIA
     Dosage: 800MG DAILY
     Route: 048
     Dates: start: 20060913, end: 20070711
  2. AMN107 [Suspect]
     Dosage: NO TREATMENT
     Dates: start: 20070712, end: 20070722
  3. AMN107 [Suspect]
     Dosage: NO TREATMENT
     Dates: start: 20070927, end: 20071009
  4. AMN107 [Suspect]
     Dosage: 800MG DAILY
     Route: 048
     Dates: start: 20071010
  5. AMN107 [Suspect]
     Dosage: 800MG DAILY
     Route: 048
     Dates: start: 20070723, end: 20070926
  6. MUCOSTA [Concomitant]
     Indication: PROPHYLAXIS
  7. AMOBAN [Concomitant]
     Indication: INSOMNIA
  8. SODIUM HYALURONATE [Concomitant]
     Indication: DRY EYE

REACTIONS (10)
  - ANGINA PECTORIS [None]
  - ARTERIAL OCCLUSIVE DISEASE [None]
  - ARTERIOSCLEROSIS OBLITERANS [None]
  - BLOOD FIBRINOGEN INCREASED [None]
  - GRAFT THROMBOSIS [None]
  - HYPOAESTHESIA [None]
  - INSOMNIA [None]
  - LIMB OPERATION [None]
  - PAIN IN EXTREMITY [None]
  - TOE AMPUTATION [None]
